FAERS Safety Report 9565347 (Version 1)
Quarter: 2013Q3

REPORT INFORMATION
  Report Type: Spontaneous
  Country: US (occurrence: US)
  Receive Date: 20130930
  Receipt Date: 20130930
  Transmission Date: 20140515
  Serious: Yes (Hospitalization)
  Sender: FDA-Public Use
  Company Number: US-BAYER-2013-115603

PATIENT
  Age: 21 Year
  Sex: Female
  Weight: 96.6 kg

DRUGS (7)
  1. BEYAZ [Suspect]
     Dosage: UNK
     Dates: start: 2010, end: 2013
  2. YAZ [Suspect]
     Dosage: UNK
     Dates: start: 2010, end: 2013
  3. CELEXA [Concomitant]
     Dosage: 10 MG, EVERY DAY
     Route: 048
  4. SEROQUEL [Concomitant]
     Dosage: 50 MG, EVERY BEDTIME
  5. TOPAMAX [Concomitant]
     Dosage: 50 MG, BID
     Route: 048
  6. ROCEPHIN [Concomitant]
  7. FIORICET [Concomitant]

REACTIONS (11)
  - Cerebrovascular accident [None]
  - Transient ischaemic attack [None]
  - Aphasia [None]
  - Speech disorder [None]
  - Muscular weakness [None]
  - Hearing impaired [None]
  - Impaired reasoning [None]
  - Dysgraphia [None]
  - Fear of disease [None]
  - Infertility female [None]
  - Repetitive speech [None]
